FAERS Safety Report 7269547-7 (Version None)
Quarter: 2011Q1

REPORT INFORMATION
  Report Type: 
  Country: None (occurrence: None)
  Receive Date: 20110202
  Receipt Date: 20110119
  Transmission Date: 20110831
  Serious: Yes (Hospitalization, Other)
  Sender: FDA-Public Use
  Company Number: US-ELI_LILLY_AND_COMPANY-US201010002297

PATIENT
  Sex: Female
  Weight: 54.422 kg

DRUGS (10)
  1. FORTEO [Suspect]
     Indication: OSTEOPOROSIS
     Dosage: 20 UG, DAILY (1/D)
     Route: 058
  2. VITAMIN D [Concomitant]
     Dosage: 2000 U, DAILY (1/D)
  3. BACLOFEN [Concomitant]
     Dosage: 20 MG, 3/D
  4. ASMANEX TWISTHALER [Concomitant]
     Dosage: UNK, 2/D
     Route: 055
  5. ZOCOR [Concomitant]
     Indication: BLOOD CHOLESTEROL
     Dosage: 40 MG, EACH EVENING
  6. CHANTIX [Concomitant]
     Dosage: 1 MG, 2/D
  7. VICODIN [Concomitant]
     Indication: ANALGESIC THERAPY
     Dosage: UNK, AS NEEDED
  8. OXYGEN [Concomitant]
  9. PREDNISONE [Concomitant]
     Dosage: 5 MG, 2/D
  10. BROVANA [Concomitant]
     Dosage: 15 UG, 2/D

REACTIONS (13)
  - MUSCULOSKELETAL CHEST PAIN [None]
  - AORTIC VALVE INCOMPETENCE [None]
  - COAGULOPATHY [None]
  - ORTHOPNOEA [None]
  - ASTHENIA [None]
  - HEMIPARESIS [None]
  - DYSARTHRIA [None]
  - ARTERIAL RUPTURE [None]
  - THROMBOCYTOPENIA [None]
  - ISCHAEMIC STROKE [None]
  - OEDEMA PERIPHERAL [None]
  - EYE SWELLING [None]
  - APHAGIA [None]
